FAERS Safety Report 9351834 (Version 1)
Quarter: 2013Q2

REPORT INFORMATION
  Report Type: Spontaneous
  Country: FR (occurrence: FR)
  Receive Date: 20130617
  Receipt Date: 20130617
  Transmission Date: 20140414
  Serious: Yes (Death)
  Sender: FDA-Public Use
  Company Number: FR-TEVA-412481ISR

PATIENT
  Age: 90 Year
  Sex: Male

DRUGS (2)
  1. FUROSEMIDE TEVA 40 MG [Suspect]
     Indication: OEDEMA
     Dosage: 2 TABLET DAILY; WHEN THERE IS NO OEDEMA
  2. FUROSEMIDE TEVA 40 MG [Suspect]
     Dosage: 4 TABLET DAILY; WHEN THERE IS OEDEMA

REACTIONS (3)
  - Death [Fatal]
  - Somnolence [Unknown]
  - Fatigue [Unknown]
